FAERS Safety Report 9770677 (Version 1)
Quarter: 2013Q4

REPORT INFORMATION
  Report Type: Spontaneous
  Country: FR (occurrence: FR)
  Receive Date: 20131218
  Receipt Date: 20131218
  Transmission Date: 20140711
  Serious: Yes (Death, Hospitalization)
  Sender: FDA-Public Use
  Company Number: FR-GLAXOSMITHKLINE-B0952749A

PATIENT
  Age: 65 Year
  Sex: Female

DRUGS (12)
  1. FORTUM [Suspect]
     Indication: INFECTION PROPHYLAXIS
     Route: 042
     Dates: start: 20131122, end: 20131125
  2. ZOVIRAX [Suspect]
     Indication: MENINGOENCEPHALITIS HERPETIC
     Route: 065
     Dates: start: 20131123, end: 20131125
  3. TAVANIC [Suspect]
     Indication: INFECTION
     Route: 042
     Dates: start: 20131118, end: 20131125
  4. XANAX [Suspect]
     Indication: ANXIETY
     Route: 048
     Dates: start: 20131115, end: 20131125
  5. TOPALGIC ( FRANCE ) [Concomitant]
  6. PHOSPHONEUROS [Concomitant]
  7. AVLOCARDYL [Concomitant]
  8. CEFTRIAXONE [Concomitant]
     Indication: BRONCHITIS
     Dates: start: 20131102
  9. BUSULFAN [Concomitant]
     Dates: start: 20131114, end: 20131117
  10. ENDOXAN [Concomitant]
     Dates: start: 20131119, end: 20131120
  11. HYDRATION [Concomitant]
  12. UROMITEXAN [Concomitant]
     Dates: start: 201311

REACTIONS (6)
  - Stevens-Johnson syndrome [Fatal]
  - Diarrhoea [Unknown]
  - Blood pressure decreased [Unknown]
  - Jaundice [Unknown]
  - Respiratory distress [Unknown]
  - Depressed level of consciousness [Unknown]
